FAERS Safety Report 25865388 (Version 1)
Quarter: 2025Q3

REPORT INFORMATION
  Report Type: Spontaneous
  Country: US (occurrence: US)
  Receive Date: 20250930
  Receipt Date: 20250930
  Transmission Date: 20251020
  Serious: No
  Sender: SANOFI AVENTIS
  Company Number: US-SA-2025SA288140

PATIENT
  Sex: Female
  Weight: 132.73 kg

DRUGS (13)
  1. DUPIXENT [Suspect]
     Active Substance: DUPILUMAB
     Indication: Dermatitis atopic
     Dosage: 300 MG, QOW
     Route: 058
  2. CAMZYOS [Concomitant]
     Active Substance: MAVACAMTEN
  3. CLONIDINE [Concomitant]
     Active Substance: CLONIDINE
  4. DILTIAZEM [Concomitant]
     Active Substance: DILTIAZEM
  5. SPIRONOLACTONE [Concomitant]
     Active Substance: SPIRONOLACTONE
  6. VALSARTAN [Concomitant]
     Active Substance: VALSARTAN
  7. MOUNJARO [Concomitant]
     Active Substance: TIRZEPATIDE
  8. ATORVASTATIN [Concomitant]
     Active Substance: ATORVASTATIN
  9. VITAMIN D NOS [Concomitant]
     Active Substance: CHOLECALCIFEROL\ERGOCALCIFEROL
  10. CARVEDILOL [Concomitant]
     Active Substance: CARVEDILOL
  11. ASPIRIN [Concomitant]
     Active Substance: ASPIRIN
  12. JARDIANCE [Concomitant]
     Active Substance: EMPAGLIFLOZIN
  13. TYLENOL [Concomitant]
     Active Substance: ACETAMINOPHEN

REACTIONS (2)
  - Illness [Unknown]
  - Vomiting [Unknown]
